FAERS Safety Report 15992815 (Version 3)
Quarter: 2019Q2

REPORT INFORMATION
  Report Type: Spontaneous
  Country: US (occurrence: US)
  Receive Date: 20190221
  Receipt Date: 20190415
  Transmission Date: 20190711
  Serious: Yes (Other)
  Sender: FDA-Public Use
  Company Number: US-BEH-2019099488

PATIENT
  Age: 17 Month
  Sex: Male
  Weight: 11.5 kg

DRUGS (2)
  1. HUMATE-P [Suspect]
     Active Substance: HUMAN COAGULATION FACTOR VIII/VON WILLEBRAND FACTOR COMPLEX
     Indication: HAEMORRHAGE PROPHYLAXIS
     Dosage: 500 IU, BIW
     Route: 042
     Dates: start: 20181015
  2. HUMATE-P [Suspect]
     Active Substance: HUMAN COAGULATION FACTOR VIII/VON WILLEBRAND FACTOR COMPLEX
     Dosage: 500 IU, QW
     Route: 042
     Dates: start: 20181015

REACTIONS (3)
  - Contusion [Recovered/Resolved]
  - Head injury [Unknown]
  - Haemorrhage [Recovered/Resolved]

NARRATIVE: CASE EVENT DATE: 20190111
